FAERS Safety Report 21148125 (Version 2)
Quarter: 2022Q3

REPORT INFORMATION
  Report Type: Spontaneous
  Country: JP (occurrence: JP)
  Receive Date: 20220729
  Receipt Date: 20220812
  Transmission Date: 20221027
  Serious: Yes (Other)
  Sender: FDA-Public Use
  Company Number: JP-002147023-NVSJ2022JP094965

PATIENT
  Age: 85 Year
  Sex: Female

DRUGS (2)
  1. LUCENTIS [Suspect]
     Active Substance: RANIBIZUMAB
     Indication: Age-related macular degeneration
     Dosage: UNK, LEFT EYE?10 MILLIGRAM PER MILLILITRE
     Route: 050
     Dates: start: 20210701, end: 20210701
  2. LUCENTIS [Suspect]
     Active Substance: RANIBIZUMAB
     Dosage: UNK, LEFT EYE
     Route: 050
     Dates: start: 20211101, end: 20211101

REACTIONS (3)
  - Age-related macular degeneration [Unknown]
  - Disease recurrence [Unknown]
  - Drug resistance [Unknown]
